FAERS Safety Report 13446759 (Version 1)
Quarter: 2017Q2

REPORT INFORMATION
  Report Type: Spontaneous
  Country: DE (occurrence: DE)
  Receive Date: 20170417
  Receipt Date: 20170417
  Transmission Date: 20170830
  Serious: Yes (Death, Disabling, Other)
  Sender: FDA-Public Use
  Company Number: DE-TORRENT-00006358

PATIENT
  Age: 1 Day
  Sex: Female

DRUGS (7)
  1. BISOPROLOL [Concomitant]
     Active Substance: BISOPROLOL
  2. VALSARTAN. [Suspect]
     Active Substance: VALSARTAN
  3. BETAMETHASONE. [Concomitant]
     Active Substance: BETAMETHASONE
  4. ASPIRIN. [Concomitant]
     Active Substance: ASPIRIN
  5. LASIX [Concomitant]
     Active Substance: FUROSEMIDE
  6. OMEPRAZOLE. [Concomitant]
     Active Substance: OMEPRAZOLE
  7. KANRENOL [Concomitant]
     Active Substance: CANRENOATE POTASSIUM

REACTIONS (6)
  - Foetal exposure during pregnancy [Unknown]
  - Death [Fatal]
  - Persistent foetal circulation [Not Recovered/Not Resolved]
  - Pulmonary hypoplasia [Not Recovered/Not Resolved]
  - Bronchopulmonary dysplasia [Not Recovered/Not Resolved]
  - Angiotensin converting enzyme inhibitor foetopathy [Not Recovered/Not Resolved]

NARRATIVE: CASE EVENT DATE: 20160418
